FAERS Safety Report 23184837 (Version 6)
Quarter: 2025Q4

REPORT INFORMATION
  Report Type: Report from Study
  Country: US (occurrence: None)
  Receive Date: 20231115
  Receipt Date: 20251205
  Transmission Date: 20260118
  Serious: Yes (Hospitalization, Other)
  Sender: UCB
  Company Number: US-UCBSA-2023025022

PATIENT
  Age: 5 Year
  Weight: 20.2 kg

DRUGS (6)
  1. FENFLURAMINE [Suspect]
     Active Substance: FENFLURAMINE
     Indication: Severe myoclonic epilepsy of infancy
     Dosage: 1.6 MILLILITER, 2X/DAY (BID)
  2. FENFLURAMINE [Suspect]
     Active Substance: FENFLURAMINE
     Dosage: 1.6ML PO BID
  3. FENFLURAMINE [Suspect]
     Active Substance: FENFLURAMINE
     Dosage: 2.1 MILLILITER, 2X/DAY (BID)
  4. FENFLURAMINE [Suspect]
     Active Substance: FENFLURAMINE
     Dosage: 2.1 MILLILITER, 2X/DAY (BID)
  5. FENFLURAMINE [Suspect]
     Active Substance: FENFLURAMINE
     Dosage: 2.5 MILLILITER, 2X/DAY (BID)
  6. FENFLURAMINE [Suspect]
     Active Substance: FENFLURAMINE
     Dosage: 0.6 MG/KG/DAY

REACTIONS (6)
  - Seizure [Recovered/Resolved]
  - Nasopharyngitis [Not Recovered/Not Resolved]
  - Hospitalisation [Not Recovered/Not Resolved]
  - Pneumonia [Not Recovered/Not Resolved]
  - Respiratory disorder [Not Recovered/Not Resolved]
  - Pyrexia [Not Recovered/Not Resolved]
